FAERS Safety Report 5723956-3 (Version None)
Quarter: 2008Q2

REPORT INFORMATION
  Report Type: 
  Country: None (occurrence: None)
  Receive Date: 20080430
  Receipt Date: 20080422
  Transmission Date: 20081010
  Serious: Yes (Death, Other)
  Sender: FDA-Public Use
  Company Number: US-PURDUE-USA_2008_0032598

PATIENT
  Age: 59 Year
  Sex: Female
  Weight: 84 kg

DRUGS (8)
  1. DILAUDID-HP [Suspect]
     Indication: PROCEDURAL PAIN
     Dosage: .5 MG, SEE TEXT
     Route: 042
     Dates: start: 20040311, end: 20040311
  2. OXYCODONE HCL [Suspect]
     Indication: DRUG USE FOR UNKNOWN INDICATION
     Route: 065
  3. PERCOCET [Suspect]
     Indication: PROCEDURAL PAIN
     Dosage: 2 TABLET, DAILY
     Route: 048
     Dates: start: 20040311, end: 20040311
  4. BENADRYL [Suspect]
     Indication: DRUG USE FOR UNKNOWN INDICATION
     Dosage: 50 MG, DAILY
     Dates: start: 20040311, end: 20040311
  5. ANAESTHETICS, GENERAL [Suspect]
     Indication: DRUG USE FOR UNKNOWN INDICATION
     Dates: start: 20040311, end: 20040311
  6. LOPRESSOR [Concomitant]
  7. NORVASC [Concomitant]
  8. ACETYLSALICYLIC ACID SRT [Concomitant]

REACTIONS (3)
  - ANAPHYLACTIC SHOCK [None]
  - ANGIOEDEMA [None]
  - CARDIO-RESPIRATORY ARREST [None]
